FAERS Safety Report 13445802 (Version 1)
Quarter: 2017Q2

REPORT INFORMATION
  Report Type: Spontaneous
  Country: JP (occurrence: JP)
  Receive Date: 20170416
  Receipt Date: 20170416
  Transmission Date: 20170830
  Serious: Yes (Other)
  Sender: FDA-Public Use
  Company Number: JP-009507513-1704JPN001033J

PATIENT
  Age: 51 Year
  Sex: Female

DRUGS (14)
  1. FAMOTIDINE. [Concomitant]
     Active Substance: FAMOTIDINE
     Indication: NAUSEA
     Dosage: 20 MG, BID
     Route: 048
     Dates: start: 20160712
  2. FEXOFENADINE HYDROCHLORIDE. [Concomitant]
     Active Substance: FEXOFENADINE HYDROCHLORIDE
     Indication: DERMATITIS ATOPIC
     Dosage: 60 MG, BID
     Route: 048
     Dates: start: 20160104
  3. MOHRUS TAPE [Concomitant]
     Active Substance: KETOPROFEN
     Indication: BACK PAIN
     Dosage: 1 DF, PRN
     Route: 062
     Dates: start: 20160618, end: 20160619
  4. SEDES HIGH [Concomitant]
     Indication: HEADACHE
     Dosage: 1 TABLET AS NEEDED
     Dates: start: 2015
  5. SOVALDI [Suspect]
     Active Substance: SOFOSBUVIR
     Dosage: UNK
     Route: 048
     Dates: start: 20160614, end: 20160905
  6. BESOFTEN [Concomitant]
     Active Substance: PENTOSAN POLYSULFATE SODIUM
     Indication: DRY SKIN PROPHYLAXIS
     Dosage: UNK, PRN
     Route: 062
     Dates: start: 20151101
  7. BIOFERMIN R [Concomitant]
     Active Substance: BACILLUS SUBTILIS\LACTOBACILLUS ACIDOPHILUS\STREPTOCOCCUS FAECAIS
     Indication: PROPHYLAXIS
     Dosage: 1 G, BID
     Route: 048
     Dates: start: 20140421
  8. DERMOVATE [Concomitant]
     Active Substance: CLOBETASOL
     Indication: INJECTION SITE PRURITUS
     Dosage: UNK UNK, PRN,PROPER DOSE
     Route: 062
     Dates: start: 20160614, end: 20160627
  9. MINOCYCLINE [Concomitant]
     Active Substance: MINOCYCLINE\MINOCYCLINE HYDROCHLORIDE
     Indication: DERMATITIS ATOPIC
     Dosage: 50 MG, BID
     Route: 048
     Dates: start: 20140421
  10. TACROLIMUS. [Concomitant]
     Active Substance: TACROLIMUS
     Indication: DERMATITIS ATOPIC
     Dosage: UNK, QD,PROPERDOSE
     Route: 062
     Dates: start: 20141117
  11. MUHI S [Concomitant]
     Indication: DERMATITIS CONTACT
     Dosage: PROPER DOSE AS NEEDED
     Dates: start: 20160620, end: 20160622
  12. REBETOL [Suspect]
     Active Substance: RIBAVIRIN
     Dosage: UNK
     Route: 048
     Dates: start: 20160614, end: 20160905
  13. DERMOVATE [Concomitant]
     Active Substance: CLOBETASOL
     Indication: DERMATITIS ATOPIC
     Dosage: UNK UNK, PRN, PROPER DOSE
     Route: 062
     Dates: start: 20160622
  14. SELBEX [Concomitant]
     Active Substance: TEPRENONE
     Indication: NAUSEA
     Dosage: 0.5 G, PRN
     Route: 048
     Dates: start: 20160623, end: 20160629

REACTIONS (3)
  - Dermatitis atopic [Not Recovered/Not Resolved]
  - Internal haemorrhage [Recovered/Resolved]
  - Angular cheilitis [Recovered/Resolved]

NARRATIVE: CASE EVENT DATE: 20160617
